FAERS Safety Report 15387331 (Version 2)
Quarter: 2018Q3

REPORT INFORMATION
  Report Type: Report from Study
  Country: JP (occurrence: JP)
  Receive Date: 20180914
  Receipt Date: 20180917
  Transmission Date: 20181010
  Serious: Yes (Death, Hospitalization, Other)
  Sender: FDA-Public Use
  Company Number: JP-BRISTOL-MYERS SQUIBB COMPANY-BMS-2018-085406

PATIENT
  Age: 61 Year
  Sex: Male

DRUGS (1)
  1. NIVOLUMAB [Suspect]
     Active Substance: NIVOLUMAB
     Indication: PLEURAL MESOTHELIOMA MALIGNANT
     Dosage: 240 MG, QD
     Route: 041
     Dates: start: 20180905, end: 20180905

REACTIONS (5)
  - Metabolic acidosis [Unknown]
  - Anaphylactic reaction [Unknown]
  - Circulatory collapse [Unknown]
  - Hepatic failure [Fatal]
  - Cardiac tamponade [Unknown]

NARRATIVE: CASE EVENT DATE: 20180908
